FAERS Safety Report 8372517-9 (Version None)
Quarter: 2012Q2

REPORT INFORMATION
  Report Type: 
  Country: None (occurrence: None)
  Receive Date: 20120521
  Receipt Date: 20120514
  Transmission Date: 20120825
  Serious: Yes (Hospitalization)
  Sender: FDA-Public Use
  Company Number: PHHY2012EC039285

PATIENT
  Sex: Female

DRUGS (2)
  1. EXFORGE HCT [Suspect]
     Indication: HYPERTENSION
     Dosage: 1 DF (160/10/25 MG), DAILY
     Route: 048
     Dates: start: 20111026
  2. LEVOTHYROXINE SODIUM [Concomitant]
     Dosage: 1 TABLET DAILY

REACTIONS (3)
  - DENGUE FEVER [None]
  - PYREXIA [None]
  - DYSURIA [None]
